FAERS Safety Report 6686491-4 (Version None)
Quarter: 2010Q2

REPORT INFORMATION
  Report Type: 
  Country: None (occurrence: None)
  Receive Date: 20100419
  Receipt Date: 20100409
  Transmission Date: 20101027
  Serious: Yes (Life-Threatening, Hospitalization)
  Sender: FDA-Public Use
  Company Number: AU-ROCHE-686084

PATIENT
  Sex: Male
  Weight: 70 kg

DRUGS (4)
  1. XELODA [Suspect]
     Indication: COLORECTAL CANCER
     Dosage: FREQUENCY: D1-14
     Route: 048
     Dates: start: 20091230, end: 20100114
  2. OXALIPLATIN [Suspect]
     Indication: COLORECTAL CANCER
     Dosage: FREQUENCY: D1
     Route: 042
     Dates: start: 20091230, end: 20091230
  3. GRANISETRON [Concomitant]
     Dosage: FREQUENCY: 1X
     Route: 042
     Dates: start: 20091230, end: 20091230
  4. DOMPERIDONE [Concomitant]
     Route: 048
     Dates: start: 20091230, end: 20100101

REACTIONS (8)
  - CLOSTRIDIUM DIFFICILE COLITIS [None]
  - HYPOVOLAEMIC SHOCK [None]
  - ILEUS [None]
  - INTESTINAL FUNCTIONAL DISORDER [None]
  - PLATELET COUNT DECREASED [None]
  - PYREXIA [None]
  - RENAL FAILURE [None]
  - WHITE BLOOD CELL COUNT INCREASED [None]
